FAERS Safety Report 7028048-1 (Version None)
Quarter: 2010Q4

REPORT INFORMATION
  Report Type: 
  Country: None (occurrence: None)
  Receive Date: 20101005
  Receipt Date: 20100920
  Transmission Date: 20110411
  Serious: Yes (Other)
  Sender: FDA-Public Use
  Company Number: US-ELI_LILLY_AND_COMPANY-US201007001274

PATIENT
  Age: 45 Year
  Sex: Female

DRUGS (4)
  1. CYMBALTA [Suspect]
     Indication: MAJOR DEPRESSION
     Dosage: 90 MG, UNK
  2. CYMBALTA [Suspect]
     Dosage: 60 MG, UNK
  3. CYMBALTA [Suspect]
     Dosage: 360 MG, UNK
  4. CYMBALTA [Suspect]
     Dosage: 180 MG, DAILY (1/D)

REACTIONS (5)
  - GASTRIC BYPASS [None]
  - HYPERSEXUALITY [None]
  - MANIA [None]
  - OVERDOSE [None]
  - VISION BLURRED [None]
